FAERS Safety Report 19460908 (Version 1)
Quarter: 2021Q2

REPORT INFORMATION
  Report Type: Spontaneous
  Country: US (occurrence: US)
  Receive Date: 20210625
  Receipt Date: 20210625
  Transmission Date: 20210717
  Serious: No
  Sender: FDA-Public Use
  Company Number: US-HIKMA PHARMACEUTICALS USA INC.-US-H14001-20-04625

PATIENT
  Age: 76 Year
  Sex: Male

DRUGS (1)
  1. TRIAZOLAM. [Suspect]
     Active Substance: TRIAZOLAM
     Indication: INSOMNIA
     Route: 048
     Dates: start: 20200925

REACTIONS (3)
  - Sleep attacks [Unknown]
  - Drug ineffective [Not Recovered/Not Resolved]
  - Phobia of driving [Unknown]

NARRATIVE: CASE EVENT DATE: 202009
